FAERS Safety Report 14460610 (Version 2)
Quarter: 2018Q1

REPORT INFORMATION
  Report Type: Report from Study
  Country: None (occurrence: US)
  Receive Date: 20180130
  Receipt Date: 20180206
  Transmission Date: 20180509
  Serious: Yes (Hospitalization, Other)
  Sender: FDA-Public Use
  Company Number: US-ABBVIE-17P-163-2191074-00

PATIENT
  Age: 82 Year
  Sex: Male
  Weight: 72.6 kg

DRUGS (33)
  1. BENADRYL [Concomitant]
     Active Substance: DIPHENHYDRAMINE HYDROCHLORIDE
     Indication: TRANSFUSION
  2. VENETOCLAX. [Suspect]
     Active Substance: VENETOCLAX
     Dosage: DAYS 1 - 21 OF EACH 28-DAY CYCLE
     Route: 048
     Dates: start: 20171106, end: 20171126
  3. TYLENOL [Concomitant]
     Active Substance: ACETAMINOPHEN
     Indication: ABDOMINAL PAIN
  4. AZACITIDINE. [Suspect]
     Active Substance: AZACITIDINE
     Indication: ACUTE MYELOID LEUKAEMIA
     Dosage: DAYS 1-7 OF EACH 28-DAY CYCLE
     Route: 042
     Dates: start: 20170330, end: 20170806
  5. NORCO 5 [Concomitant]
     Indication: HEPATIC LESION
  6. VENETOCLAX. [Suspect]
     Active Substance: VENETOCLAX
     Indication: ACUTE MYELOID LEUKAEMIA
     Dosage: DAYS 1 - 21 OF EACH 28-DAY CYCLE
     Route: 048
     Dates: start: 20170330, end: 20170330
  7. VENETOCLAX. [Suspect]
     Active Substance: VENETOCLAX
     Dosage: DAYS 1 - 21 OF EACH 28-DAY CYCLE
     Route: 048
     Dates: start: 20171009, end: 20171029
  8. ZOFRAN [Concomitant]
     Active Substance: ONDANSETRON HYDROCHLORIDE
     Indication: VOMITING
  9. BENADRYL [Concomitant]
     Active Substance: DIPHENHYDRAMINE HYDROCHLORIDE
     Indication: PROPHYLAXIS
  10. VENETOCLAX. [Suspect]
     Active Substance: VENETOCLAX
     Dosage: DAYS 1 - 21 OF EACH 28-DAY CYCLE
     Route: 048
     Dates: start: 20170401, end: 20170820
  11. AZACITIDINE. [Suspect]
     Active Substance: AZACITIDINE
     Dosage: DAYS 1-7 OF EACH 28-DAY CYCLE
     Route: 042
     Dates: start: 20171009, end: 20171112
  12. TYLENOL [Concomitant]
     Active Substance: ACETAMINOPHEN
     Indication: PAIN
  13. COZAAR [Concomitant]
     Active Substance: LOSARTAN POTASSIUM
     Indication: HYPERTENSION
     Dosage: 25-50 MG
     Route: 048
     Dates: start: 20170222
  14. ZOFRAN [Concomitant]
     Active Substance: ONDANSETRON HYDROCHLORIDE
     Indication: NAUSEA
     Route: 048
     Dates: start: 20170401, end: 20170401
  15. ZOFRAN [Concomitant]
     Active Substance: ONDANSETRON HYDROCHLORIDE
     Indication: PROPHYLAXIS OF NAUSEA AND VOMITING
     Route: 042
     Dates: start: 20170330
  16. ZOFRAN [Concomitant]
     Active Substance: ONDANSETRON HYDROCHLORIDE
     Indication: PREMEDICATION
  17. ZOFRAN [Concomitant]
     Active Substance: ONDANSETRON HYDROCHLORIDE
     Indication: INFUSION
  18. NORVASC [Concomitant]
     Active Substance: AMLODIPINE BESYLATE
     Indication: HYPERTENSION
     Route: 048
     Dates: start: 20170301
  19. BENADRYL [Concomitant]
     Active Substance: DIPHENHYDRAMINE HYDROCHLORIDE
     Indication: PREMEDICATION
     Route: 048
     Dates: start: 20170418
  20. NORCO 5 [Concomitant]
     Indication: FLANK PAIN
     Dosage: 5/325 MG, 1 IN 6 HOURS
     Route: 048
     Dates: start: 20171210
  21. VENETOCLAX. [Suspect]
     Active Substance: VENETOCLAX
     Dosage: DAYS 1 - 21 OF EACH 28-DAY CYCLE
     Route: 048
     Dates: start: 20170331, end: 20170331
  22. MAGNESIUM CITRATE. [Concomitant]
     Active Substance: MAGNESIUM CITRATE
     Indication: CONSTIPATION
     Route: 048
     Dates: start: 20170407
  23. FLOMAX [Concomitant]
     Active Substance: TAMSULOSIN HYDROCHLORIDE
     Indication: BENIGN PROSTATIC HYPERPLASIA
     Route: 048
     Dates: start: 20170228
  24. CATHFLO ACTIVASE [Concomitant]
     Active Substance: ALTEPLASE
     Indication: PROPHYLAXIS
     Dosage: INTERCATHETER
     Dates: start: 20170403
  25. VENETOCLAX. [Suspect]
     Active Substance: VENETOCLAX
     Dosage: DAYS 1 - 21 OF EACH 28-DAY CYCLE
     Route: 048
     Dates: start: 20180129
  26. AZACITIDINE. [Suspect]
     Active Substance: AZACITIDINE
     Dosage: DAYS 1-7 OF EACH 28-DAY CYCLE
     Route: 042
     Dates: start: 20180129
  27. ZOCOR [Concomitant]
     Active Substance: SIMVASTATIN
     Indication: HYPERLIPIDAEMIA
     Route: 048
     Dates: start: 20170222
  28. TYLENOL [Concomitant]
     Active Substance: ACETAMINOPHEN
     Indication: PYREXIA
     Route: 048
     Dates: start: 20170414
  29. TYLENOL [Concomitant]
     Active Substance: ACETAMINOPHEN
     Indication: HEADACHE
  30. TYLENOL [Concomitant]
     Active Substance: ACETAMINOPHEN
     Indication: PREMEDICATION
  31. TYLENOL [Concomitant]
     Active Substance: ACETAMINOPHEN
     Indication: TRANSFUSION
  32. HEPARIN PRESERVATIVE FREE 100/UNITS/ML [Concomitant]
     Indication: CATHETER MANAGEMENT
     Dosage: INTERCATHETHER, EVERY PICC LINE ACCESS
     Dates: start: 20170401
  33. CATHFLO ACTIVASE [Concomitant]
     Active Substance: ALTEPLASE
     Indication: CATHETER MANAGEMENT

REACTIONS (3)
  - Escherichia bacteraemia [Recovered/Resolved]
  - Clostridium bacteraemia [Recovered/Resolved]
  - Abdominal abscess [Not Recovered/Not Resolved]

NARRATIVE: CASE EVENT DATE: 20171208
